FAERS Safety Report 16776364 (Version 1)
Quarter: 2019Q3

REPORT INFORMATION
  Report Type: Spontaneous
  Country: FR (occurrence: FR)
  Receive Date: 20190905
  Receipt Date: 20190905
  Transmission Date: 20191005
  Serious: Yes (Life-Threatening)
  Sender: FDA-Public Use
  Company Number: FR-MYLANLABS-2019M1083034

PATIENT
  Age: 66 Year
  Sex: Male
  Weight: 115 kg

DRUGS (8)
  1. PREDNISONE. [Concomitant]
     Active Substance: PREDNISONE
     Indication: CENTRAL NERVOUS SYSTEM LYMPHOMA
     Dosage: 60 MILLIGRAM, QD
     Route: 048
     Dates: start: 20190322, end: 20190328
  2. BISOPROLOL                         /00802602/ [Concomitant]
     Active Substance: BISOPROLOL
     Dosage: 5 MILLIGRAM, QD
     Route: 048
  3. RIXATHON [Concomitant]
     Active Substance: RITUXIMAB
     Indication: CENTRAL NERVOUS SYSTEM LYMPHOMA
     Dosage: 700 MILLIGRAM, TOTAL
     Route: 041
     Dates: start: 20190321, end: 20190321
  4. VALACYCLOVIR [Concomitant]
     Active Substance: VALACYCLOVIR HYDROCHLORIDE
     Indication: ANTIVIRAL PROPHYLAXIS
     Dosage: 500 MILLIGRAM, QD
     Route: 048
     Dates: start: 20190319
  5. METHOTREXATE MYLAN 50 MG/2 ML, SOLUTION FOR INJECTION [Suspect]
     Active Substance: METHOTREXATE SODIUM
     Indication: CENTRAL NERVOUS SYSTEM LYMPHOMA
     Dosage: 7000 MILLIGRAM, CYCLE
     Route: 041
     Dates: start: 20190322, end: 20190322
  6. VERAPAMIL [Concomitant]
     Active Substance: VERAPAMIL HYDROCHLORIDE
     Indication: HYPERTENSION
     Dosage: 120 MILLICURIE, QD
     Route: 048
  7. VINCRISTINE                        /00078802/ [Concomitant]
     Active Substance: VINCRISTINE
     Indication: CENTRAL NERVOUS SYSTEM LYMPHOMA
     Dosage: 2 MILLIGRAM, TOTAL
     Route: 041
     Dates: start: 20190322, end: 20190322
  8. NATULAN [Concomitant]
     Active Substance: PROCARBAZINE HYDROCHLORIDE
     Indication: CENTRAL NERVOUS SYSTEM LYMPHOMA
     Dosage: 200 MILLIGRAM, QD
     Route: 048
     Dates: start: 20190322, end: 20190328

REACTIONS (2)
  - Acute kidney injury [Recovering/Resolving]
  - Incorrect disposal of product [Recovering/Resolving]

NARRATIVE: CASE EVENT DATE: 20190323
